FAERS Safety Report 25050022 (Version 1)
Quarter: 2025Q1

REPORT INFORMATION
  Report Type: Spontaneous
  Country: FR (occurrence: FR)
  Receive Date: 20250307
  Receipt Date: 20250307
  Transmission Date: 20250408
  Serious: Yes (Death, Life-Threatening, Hospitalization)
  Sender: CHEPLAPHARM
  Company Number: None

PATIENT
  Age: 75 Year
  Sex: Male
  Weight: 89 kg

DRUGS (14)
  1. HYDROXYUREA [Suspect]
     Active Substance: HYDROXYUREA
     Indication: Essential thrombocythaemia
     Dosage: 500MG 2/DAY?DAILY DOSE: 1000 MILLIGRAM
     Route: 048
     Dates: start: 20210615, end: 20240129
  2. HYDROXYUREA [Suspect]
     Active Substance: HYDROXYUREA
     Indication: Essential thrombocythaemia
     Dosage: 500MG 2/DAY?DAILY DOSE: 1000 MILLIGRAM
     Route: 048
     Dates: start: 20210615
  3. HYDROXYUREA [Suspect]
     Active Substance: HYDROXYUREA
     Indication: Essential thrombocythaemia
     Dosage: HYDREA 500 MG/DAY RESUMED?DAILY DOSE: 500 MILLIGRAM
     Route: 048
  4. MEKTOVI [Suspect]
     Active Substance: BINIMETINIB
     Indication: Metastatic malignant melanoma
     Dosage: DAILY DOSE: 90 MILLIGRAM
     Route: 048
     Dates: start: 20240124, end: 20240126
  5. MEKTOVI [Suspect]
     Active Substance: BINIMETINIB
     Indication: Metastatic malignant melanoma
     Dosage: DAILY DOSE: 90 MILLIGRAM
     Route: 048
     Dates: start: 20240129
  6. BRAFTOVI [Suspect]
     Active Substance: ENCORAFENIB
     Indication: Metastatic malignant melanoma
     Dosage: DAILY DOSE: 450 MILLIGRAM
     Route: 048
     Dates: start: 20240124, end: 20240126
  7. BRAFTOVI [Suspect]
     Active Substance: ENCORAFENIB
     Indication: Metastatic malignant melanoma
     Dosage: DAILY DOSE: 450 MILLIGRAM
     Route: 048
     Dates: start: 20240129
  8. NEBIVOLOL [Concomitant]
     Active Substance: NEBIVOLOL
  9. PERINDOPRIL [Concomitant]
     Active Substance: PERINDOPRIL
  10. LERCANIDIPINE HYDROCHLORIDE [Concomitant]
     Active Substance: LERCANIDIPINE HYDROCHLORIDE
  11. KARDEGIC [Concomitant]
     Active Substance: ASPIRIN DL-LYSINE
  12. AVODART [Concomitant]
     Active Substance: DUTASTERIDE
  13. HERBALS\SAW PALMETTO [Concomitant]
     Active Substance: HERBALS\SAW PALMETTO
  14. OXAZEPAM [Concomitant]
     Active Substance: OXAZEPAM

REACTIONS (17)
  - Metastatic malignant melanoma [Fatal]
  - Tumour lysis syndrome [Recovered/Resolved]
  - Asthenia [Unknown]
  - Cholestasis [Unknown]
  - Hyponatraemia [Unknown]
  - Septic shock [Unknown]
  - Hypovolaemic shock [Unknown]
  - Diarrhoea [Unknown]
  - Abdominal pain [Unknown]
  - Vomiting [Unknown]
  - Hyperkalaemia [Unknown]
  - Hypocalcaemia [Unknown]
  - Hyperphosphataemia [Unknown]
  - Hyperuricaemia [Unknown]
  - Acute kidney injury [Unknown]
  - Alpha haemolytic streptococcal infection [Unknown]
  - Escherichia bacteraemia [Unknown]

NARRATIVE: CASE EVENT DATE: 20231118
